FAERS Safety Report 14174574 (Version 14)
Quarter: 2021Q1

REPORT INFORMATION
  Report Type: Report from Study
  Country: CA (occurrence: CA)
  Receive Date: 20171109
  Receipt Date: 20210203
  Transmission Date: 20210419
  Serious: Yes (Death, Hospitalization, Other)
  Sender: FDA-Public Use
  Company Number: CA-PFIZER INC-2017480638

PATIENT
  Age: 87 Year
  Sex: Male

DRUGS (16)
  1. IMURAN [Concomitant]
     Active Substance: AZATHIOPRINE
     Dosage: UNK
     Dates: start: 201601
  2. ENTYVIO [Suspect]
     Active Substance: VEDOLIZUMAB
     Dosage: 300 MILLIGRAM
     Route: 042
  3. LORAZEPAM. [Concomitant]
     Active Substance: LORAZEPAM
     Indication: ANXIETY
     Dosage: UNK
  4. PANTOLOC [Suspect]
     Active Substance: PANTOPRAZOLE SODIUM
     Dosage: UNK
     Route: 065
     Dates: start: 20060101
  5. ENTYVIO [Suspect]
     Active Substance: VEDOLIZUMAB
     Indication: COLITIS ULCERATIVE
     Dosage: 300 MILLIGRAM
     Route: 042
     Dates: start: 20161005
  6. ENTYVIO [Suspect]
     Active Substance: VEDOLIZUMAB
     Dosage: 300 MILLIGRAM
     Route: 042
  7. BISOPROLOL [Concomitant]
     Active Substance: BISOPROLOL
     Indication: HYPERTENSION
     Dosage: UNK
     Dates: start: 2000
  8. ENTYVIO [Suspect]
     Active Substance: VEDOLIZUMAB
     Dosage: 300 MILLIGRAM
     Route: 042
  9. AMLODIPINE [Concomitant]
     Active Substance: AMLODIPINE BESYLATE
     Indication: HYPERTENSION
     Dosage: UNK
     Dates: start: 2000
  10. ROSUVASTATIN. [Concomitant]
     Active Substance: ROSUVASTATIN
     Indication: BLOOD CHOLESTEROL INCREASED
     Dosage: UNK
     Dates: start: 2001
  11. ENTYVIO [Suspect]
     Active Substance: VEDOLIZUMAB
     Dosage: 300 MILLIGRAM
     Route: 042
  12. ENTYVIO [Suspect]
     Active Substance: VEDOLIZUMAB
     Dosage: 300 MILLIGRAM
     Route: 042
  13. OLMETEC [Concomitant]
     Active Substance: OLMESARTAN MEDOXOMIL
     Indication: HYPERTENSION
     Dosage: UNK
     Dates: start: 2000
  14. HYDROXYCHLOROQUINE [Concomitant]
     Active Substance: HYDROXYCHLOROQUINE
     Indication: RHEUMATOID ARTHRITIS
     Dosage: UNK
     Dates: start: 2000
  15. HYDRAZINE [Concomitant]
     Active Substance: HYDRAZINE SULFATE
     Indication: HYPERTENSION
     Dosage: UNK
     Dates: start: 2000
  16. ELAVIL [Concomitant]
     Active Substance: AMITRIPTYLINE HYDROCHLORIDE
     Indication: ANXIETY
     Dosage: UNK
     Dates: start: 2016

REACTIONS (8)
  - Urinary tract infection [Recovered/Resolved]
  - Weight decreased [Unknown]
  - Urinary tract infection [Recovered/Resolved]
  - Cardiac failure congestive [Fatal]
  - Cystitis [Not Recovered/Not Resolved]
  - Diarrhoea [Recovered/Resolved]
  - Clostridium difficile infection [Recovered/Resolved]
  - Gastrointestinal disorder [Unknown]

NARRATIVE: CASE EVENT DATE: 20171024
